FAERS Safety Report 9723373 (Version 1)
Quarter: 2013Q4

REPORT INFORMATION
  Report Type: Spontaneous
  Country: US (occurrence: US)
  Receive Date: 20131202
  Receipt Date: 20131202
  Transmission Date: 20140711
  Serious: Yes (Other)
  Sender: FDA-Public Use
  Company Number: US-GLAXOSMITHKLINE-A1039195A

PATIENT
  Age: 65 Year
  Sex: Female

DRUGS (2)
  1. FLOVENT [Suspect]
     Indication: ASTHMA
     Dosage: 44MCG UNKNOWN
     Route: 055
     Dates: start: 20130426
  2. VENTOLIN [Suspect]
     Indication: PRODUCT USED FOR UNKNOWN INDICATION
     Route: 065
     Dates: start: 20130910

REACTIONS (4)
  - Addison^s disease [Unknown]
  - Malaise [Not Recovered/Not Resolved]
  - Lung disorder [Unknown]
  - Adverse event [Unknown]
